FAERS Safety Report 25289276 (Version 1)
Quarter: 2025Q2

REPORT INFORMATION
  Report Type: Spontaneous
  Country: US (occurrence: None)
  Receive Date: 20250509
  Receipt Date: 20250509
  Transmission Date: 20250717
  Serious: Yes (Death)
  Sender: FDA-CTU
  Company Number: None

PATIENT
  Age: 73 Year
  Sex: Female

DRUGS (15)
  1. AMBRISENTAN [Suspect]
     Active Substance: AMBRISENTAN
     Indication: Pulmonary arterial hypertension
     Dosage: FREQUENCY : DAILY;?
     Route: 048
     Dates: end: 20150121
  2. UPTRAVI [Concomitant]
     Active Substance: SELEXIPAG
  3. POTASSIUM CHLORIDE [Concomitant]
     Active Substance: POTASSIUM CHLORIDE
  4. PANTOPRAZOLE [Concomitant]
     Active Substance: PANTOPRAZOLE
  5. METOLAZONE [Concomitant]
     Active Substance: METOLAZONE
  6. COMBIVENT RESPIMAT [Concomitant]
     Active Substance: ALBUTEROL SULFATE\IPRATROPIUM BROMIDE
  7. DIGOXIN [Concomitant]
     Active Substance: DIGOXIN
  8. APIXABAN [Concomitant]
     Active Substance: APIXABAN
  9. TRAZODONE [Concomitant]
     Active Substance: TRAZODONE HYDROCHLORIDE
  10. FERROUS SULFATE [Concomitant]
     Active Substance: FERROUS SULFATE
  11. TORSEMIDE [Concomitant]
     Active Substance: TORSEMIDE
  12. PROPYLTHIOURACIL [Concomitant]
     Active Substance: PROPYLTHIOURACIL
  13. SPIRONOLACTONE [Concomitant]
     Active Substance: SPIRONOLACTONE
  14. DOCUSATE SODIUM [Concomitant]
     Active Substance: DOCUSATE SODIUM
  15. LACTULOSE [Concomitant]
     Active Substance: LACTULOSE

REACTIONS (13)
  - Right ventricular dilatation [None]
  - Systolic dysfunction [None]
  - Tricuspid valve incompetence [None]
  - Atrial fibrillation [None]
  - Obstructive sleep apnoea syndrome [None]
  - Chronic obstructive pulmonary disease [None]
  - Chronic respiratory failure [None]
  - Chronic kidney disease [None]
  - Chronic kidney disease [None]
  - Hypothyroidism [None]
  - Anxiety [None]
  - Right ventricular failure [None]
  - Cardiopulmonary failure [None]

NARRATIVE: CASE EVENT DATE: 20250113
